FAERS Safety Report 6133246-5 (Version None)
Quarter: 2009Q1

REPORT INFORMATION
  Report Type: 
  Country: None (occurrence: None)
  Receive Date: 20090326
  Receipt Date: 20090318
  Transmission Date: 20090719
  Serious: Yes (Other)
  Sender: FDA-Public Use
  Company Number: CH-ASTRAZENECA-2009PK00904

PATIENT
  Sex: Male

DRUGS (3)
  1. ZOLADEX SAFESYSTEM [Suspect]
     Indication: PROSTATE CANCER
     Route: 058
     Dates: start: 20080901
  2. ANTIDIABETICS [Concomitant]
  3. ANTIHYPERTENSIVES [Concomitant]

REACTIONS (4)
  - DIABETES MELLITUS [None]
  - DIPLEGIA [None]
  - GAIT DISTURBANCE [None]
  - HYPERTENSION [None]
